FAERS Safety Report 16651612 (Version 1)
Quarter: 2019Q3

REPORT INFORMATION
  Report Type: Spontaneous
  Country: GB (occurrence: GB)
  Receive Date: 20190731
  Receipt Date: 20190731
  Transmission Date: 20191004
  Serious: Yes (Hospitalization)
  Sender: FDA-Public Use
  Company Number: GB-ROCHE-2360832

PATIENT
  Age: 51 Year
  Sex: Female
  Weight: 73 kg

DRUGS (3)
  1. TECENTRIQ [Suspect]
     Active Substance: ATEZOLIZUMAB
     Indication: SMALL CELL CARCINOMA
     Route: 042
     Dates: start: 20190702
  2. PREDNISOLONE. [Concomitant]
     Active Substance: PREDNISOLONE
     Indication: PAIN
     Route: 048
     Dates: start: 20190716
  3. CBD OIL [Concomitant]
     Active Substance: CANNABIDIOL\HERBALS

REACTIONS (4)
  - Abdominal pain upper [Recovering/Resolving]
  - Liver function test abnormal [Recovering/Resolving]
  - Pyrexia [Unknown]
  - Metastases to liver [Unknown]

NARRATIVE: CASE EVENT DATE: 20190716
